FAERS Safety Report 13900898 (Version 3)
Quarter: 2017Q4

REPORT INFORMATION
  Report Type: Report from Study
  Country: None (occurrence: DE)
  Receive Date: 20170824
  Receipt Date: 20171010
  Transmission Date: 20180320
  Serious: Yes (Death, Hospitalization)
  Sender: FDA-Public Use
  Company Number: DE-ABBVIE-17K-062-2080408-00

PATIENT
  Age: 85 Year
  Sex: Male

DRUGS (3)
  1. AMLODIPIN [Concomitant]
     Active Substance: AMLODIPINE BESYLATE
     Indication: PRODUCT USED FOR UNKNOWN INDICATION
  2. ENALAPRIL [Concomitant]
     Active Substance: ENALAPRIL
     Indication: PRODUCT USED FOR UNKNOWN INDICATION
  3. DUODOPA [Suspect]
     Active Substance: CARBIDOPA\LEVODOPA
     Indication: PARKINSON^S DISEASE
     Dosage: MD 8 ML; CRD 3.3 ML/H; CRN 3.3 ML/H; ED 1.5 ML
     Route: 050
     Dates: start: 20150507

REACTIONS (3)
  - Device dislocation [Unknown]
  - Oxygen saturation decreased [Fatal]
  - General physical health deterioration [Fatal]

NARRATIVE: CASE EVENT DATE: 20170810
